FAERS Safety Report 5387605-9 (Version None)
Quarter: 2007Q3

REPORT INFORMATION
  Report Type: 
  Country: None (occurrence: None)
  Receive Date: 20070711
  Receipt Date: 20070711
  Transmission Date: 20080115
  Serious: Yes (Death)
  Sender: FDA-Public Use
  Company Number: None

PATIENT
  Age: 45 Year
  Sex: Male
  Weight: 114 kg

DRUGS (1)
  1. METHADONE HCL [Suspect]
     Indication: PAIN MANAGEMENT
     Dates: start: 20070101, end: 20070215

REACTIONS (1)
  - MYOCARDIAL ISCHAEMIA [None]
